FAERS Safety Report 6208822-1 (Version None)
Quarter: 2009Q2

REPORT INFORMATION
  Report Type: 
  Country: None (occurrence: None)
  Receive Date: 20090529
  Receipt Date: 20090520
  Transmission Date: 20091009
  Serious: Yes (Hospitalization)
  Sender: FDA-Public Use
  Company Number: A0759715A

PATIENT
  Age: 66 Year
  Sex: Female
  Weight: 89.5 kg

DRUGS (6)
  1. AVANDAMET [Suspect]
     Route: 048
     Dates: start: 20061001, end: 20080501
  2. AVANDARYL [Suspect]
     Route: 048
     Dates: start: 20080501, end: 20081210
  3. SYNTHROID [Concomitant]
     Indication: HYPOTHYROIDISM
     Dosage: 100MCG PER DAY
     Route: 048
  4. UNKNOWN [Concomitant]
  5. ACCUPRIL [Concomitant]
     Indication: MICROALBUMINURIA
     Dosage: 10MG PER DAY
     Route: 048
     Dates: start: 20030801
  6. PREVACID [Concomitant]
     Dosage: 30MG PER DAY
     Route: 048
     Dates: start: 20080101

REACTIONS (11)
  - ABDOMINAL DISTENSION [None]
  - BLOOD TRIGLYCERIDES INCREASED [None]
  - BOWEL MOVEMENT IRREGULARITY [None]
  - DIARRHOEA [None]
  - EYE DISORDER [None]
  - FLATULENCE [None]
  - FLUID RETENTION [None]
  - NAUSEA [None]
  - RETCHING [None]
  - VOMITING [None]
  - WEIGHT INCREASED [None]
